FAERS Safety Report 12535251 (Version 1)
Quarter: 2016Q3

REPORT INFORMATION
  Report Type: Spontaneous
  Country: JP (occurrence: JP)
  Receive Date: 20160707
  Receipt Date: 20160707
  Transmission Date: 20161109
  Serious: Yes (Death, Other)
  Sender: FDA-Public Use
  Company Number: JP-CIPLA LTD.-2012JP00365

PATIENT

DRUGS (2)
  1. CARBOPLATIN. [Suspect]
     Active Substance: CARBOPLATIN
     Indication: SMALL CELL LUNG CANCER
     Dosage: 300 MG/M2, ON DAY 1
     Route: 065
  2. ETOPOSIDE. [Suspect]
     Active Substance: ETOPOSIDE
     Indication: SMALL CELL LUNG CANCER
     Dosage: 50 MG/M2 ON DAYS 1 AND 3
     Route: 065

REACTIONS (6)
  - Disease progression [Fatal]
  - Pneumonia [Unknown]
  - General physical health deterioration [Unknown]
  - Febrile neutropenia [Unknown]
  - Hypotension [Unknown]
  - Thrombocytopenia [Unknown]
